FAERS Safety Report 7909192-0 (Version None)
Quarter: 2011Q4

REPORT INFORMATION
  Report Type: 
  Country: None (occurrence: None)
  Receive Date: 20111111
  Receipt Date: 20110707
  Transmission Date: 20120403
  Serious: No
  Sender: FDA-Public Use
  Company Number: US-GLAXOSMITHKLINE-A0935354A

PATIENT
  Age: 46 Year
  Sex: Female

DRUGS (3)
  1. COREG [Suspect]
     Indication: CARDIAC FAILURE CONGESTIVE
     Dosage: 1TAB TWICE PER DAY
     Route: 048
     Dates: start: 20050101
  2. DIURETIC [Concomitant]
  3. ALTACE [Concomitant]

REACTIONS (1)
  - HEADACHE [None]
